FAERS Safety Report 22987490 (Version 2)
Quarter: 2023Q4

REPORT INFORMATION
  Report Type: Spontaneous
  Country: DE (occurrence: DE)
  Receive Date: 20230926
  Receipt Date: 20231006
  Transmission Date: 20240109
  Serious: Yes (Death, Other)
  Sender: FDA-Public Use
  Company Number: DE-PEI-202300036802

PATIENT
  Age: 60 Year
  Sex: Female

DRUGS (10)
  1. YESCARTA [Suspect]
     Active Substance: AXICABTAGENE CILOLEUCEL
     Indication: Lymphocyte adoptive therapy
     Dosage: 1 DOSAGE FORM
     Route: 042
     Dates: start: 20220927, end: 20220927
  2. THIOTEPA [Concomitant]
     Active Substance: THIOTEPA
  3. FLUDARABINE [Concomitant]
     Active Substance: FLUDARABINE PHOSPHATE
  4. CYCLOPHOSPHAMIDE [Concomitant]
     Active Substance: CYCLOPHOSPHAMIDE
  5. SIROLIMUS [Concomitant]
     Active Substance: SIROLIMUS
  6. LEVETIRACETAM [Concomitant]
     Active Substance: LEVETIRACETAM
     Indication: Prophylaxis
  7. CYCLOSPORINE [Concomitant]
     Active Substance: CYCLOSPORINE
  8. VITAMIN B1 [Concomitant]
     Active Substance: THIAMINE HYDROCHLORIDE
  9. VITAMIN B12 [Concomitant]
     Active Substance: CYANOCOBALAMIN
  10. VITAMIN B2 [Concomitant]
     Active Substance: RIBOFLAVIN

REACTIONS (4)
  - Brain oedema [Fatal]
  - Aspiration [Unknown]
  - Disorientation [Unknown]
  - Somnolence [Unknown]

NARRATIVE: CASE EVENT DATE: 20230827
